FAERS Safety Report 25146455 (Version 2)
Quarter: 2025Q2

REPORT INFORMATION
  Report Type: Report from Study
  Country: US (occurrence: US)
  Receive Date: 20250401
  Receipt Date: 20250417
  Transmission Date: 20250716
  Serious: Yes (Other)
  Sender: BAYER
  Company Number: US-BAYER-2025A041730

PATIENT
  Age: 78 Year
  Sex: Male

DRUGS (1)
  1. NUBEQA [Suspect]
     Active Substance: DAROLUTAMIDE
     Indication: Prostate cancer metastatic
     Dosage: 300 MG, BID
     Route: 048

REACTIONS (3)
  - Malignant neoplasm progression [Not Recovered/Not Resolved]
  - Dementia [None]
  - Product use issue [None]
